FAERS Safety Report 25749607 (Version 1)
Quarter: 2025Q3

REPORT INFORMATION
  Report Type: Spontaneous
  Country: US (occurrence: US)
  Receive Date: 20250902
  Receipt Date: 20250902
  Transmission Date: 20251021
  Serious: No
  Sender: CSL BEHRING
  Company Number: US-BEH-2025217431

PATIENT
  Sex: Female

DRUGS (3)
  1. HIZENTRA [Suspect]
     Active Substance: HUMAN IMMUNOGLOBULIN G
     Indication: Immunodeficiency common variable
     Dosage: 12 G, QW
     Route: 058
     Dates: start: 201611
  2. LIDOCAINE [Concomitant]
     Active Substance: LIDOCAINE
  3. PRILOCAINE [Concomitant]
     Active Substance: PRILOCAINE

REACTIONS (2)
  - Decreased appetite [Unknown]
  - Headache [Unknown]
